FAERS Safety Report 5158914-3 (Version None)
Quarter: 2006Q4

REPORT INFORMATION
  Report Type: 
  Country: None (occurrence: None)
  Receive Date: 20061117
  Receipt Date: 20061103
  Transmission Date: 20070319
  Serious: Yes (Life-Threatening, Hospitalization)
  Sender: FDA-Public Use
  Company Number: 226655

PATIENT
  Age: 80 Year
  Sex: Female
  Weight: 69.8 kg

DRUGS (1)
  1. HERCEPTIN [Suspect]
     Indication: BREAST CANCER METASTATIC
     Dosage: 140 MG/KG, 1/WEEK; INTRAVENOUS
     Route: 042
     Dates: start: 20040205, end: 20060622

REACTIONS (1)
  - PULMONARY EMBOLISM [None]
